FAERS Safety Report 15433648 (Version 2)
Quarter: 2019Q1

REPORT INFORMATION
  Report Type: Report from Study
  Country: US (occurrence: US)
  Receive Date: 20180927
  Receipt Date: 20190226
  Transmission Date: 20190417
  Serious: No
  Sender: FDA-Public Use
  Company Number: US-AMGEN-USASL2018133362

PATIENT
  Age: 60 Year
  Sex: Male

DRUGS (1)
  1. ENBREL [Suspect]
     Active Substance: ETANERCEPT
     Indication: PSORIATIC ARTHROPATHY
     Dosage: 50 MG, ONCE A MONTH AS NEEDED
     Route: 065

REACTIONS (2)
  - Product storage error [Unknown]
  - Intentional product misuse [Unknown]
